FAERS Safety Report 9242202 (Version 2)
Quarter: 2013Q2

REPORT INFORMATION
  Report Type: Spontaneous
  Country: US (occurrence: US)
  Receive Date: 20130419
  Receipt Date: 20130604
  Transmission Date: 20140414
  Serious: Yes (Other)
  Sender: FDA-Public Use
  Company Number: US-TEVA-398448USA

PATIENT
  Sex: Female

DRUGS (2)
  1. TRI-SPRINTEC [Suspect]
     Dates: start: 20130206
  2. CLOZAPINE [Suspect]
     Dates: start: 2009

REACTIONS (1)
  - Granulocytopenia [Unknown]
